FAERS Safety Report 8982646 (Version 1)
Quarter: 2012Q4

REPORT INFORMATION
  Report Type: 
  Country: US (occurrence: US)
  Receive Date: 20121221
  Receipt Date: 20121221
  Transmission Date: 20130627
  Serious: No
  Sender: FDA-Public Use
  Company Number: US-ASTRAZENECA-2011SE66462

PATIENT
  Age: 833 Month
  Sex: Male
  Weight: 68.5 kg

DRUGS (11)
  1. NEXIUM [Suspect]
     Indication: ULCER
     Route: 048
     Dates: start: 201202
  2. NEXIUM [Suspect]
     Indication: GASTRIC INFECTION
     Route: 048
     Dates: start: 201202
  3. NEXIUM IV [Suspect]
     Route: 042
  4. LISINOPRIL [Suspect]
     Route: 050
     Dates: start: 2006
  5. SIMVASTATIN [Concomitant]
  6. BAYER ASPIRIN [Concomitant]
  7. VITAMIN D [Concomitant]
  8. MEDICATIONS FOR HYPERTENSION [Concomitant]
  9. MEDICATIONS FOR HEART CONDITION [Concomitant]
  10. CABATELOL [Concomitant]
  11. LIBRIUM [Concomitant]

REACTIONS (3)
  - Dyspepsia [Not Recovered/Not Resolved]
  - Abdominal pain upper [Not Recovered/Not Resolved]
  - Off label use [Unknown]
